FAERS Safety Report 5724297-0 (Version None)
Quarter: 2008Q2

REPORT INFORMATION
  Report Type: 
  Country: None (occurrence: None)
  Receive Date: 20080428
  Receipt Date: 20080416
  Transmission Date: 20081010
  Serious: Yes (Congenital Anomaly)
  Sender: FDA-Public Use
  Company Number: 08H-167-0314194-00

PATIENT

DRUGS (6)
  1. ONDANSETRON [Suspect]
     Dosage: 4 MG, 2 IN 1 D, TRANSPLACENTAL : 4 MG, 3 IN 1 D, TRANSPLACENTAL
     Route: 064
  2. METOCLOPRAMIDE [Concomitant]
  3. PROMETHAZINE [Concomitant]
  4. THIAMINE (THIAMINE) [Concomitant]
  5. CYCLIZINE (CYCLIZINE) [Concomitant]
  6. FOLIC ACID [Concomitant]

REACTIONS (8)
  - CONGENITAL HYDRONEPHROSIS [None]
  - FOETAL DISORDER [None]
  - FOETAL GROWTH RETARDATION [None]
  - FOETAL MALFORMATION [None]
  - GASTROSCHISIS [None]
  - HEART DISEASE CONGENITAL [None]
  - MATERNAL DRUGS AFFECTING FOETUS [None]
  - SPINAL DEFORMITY [None]
